FAERS Safety Report 5271381-4 (Version None)
Quarter: 2007Q1

REPORT INFORMATION
  Report Type: 
  Country: None (occurrence: None)
  Receive Date: 20070321
  Receipt Date: 20070314
  Transmission Date: 20070707
  Serious: Yes (Other)
  Sender: FDA-Public Use
  Company Number: GB-JNJFOC-20070303773

PATIENT
  Age: 80 Year
  Sex: Female

DRUGS (5)
  1. IBUPROFEN [Suspect]
     Indication: ARTHRALGIA
  2. DORZOLAMIDE HCL [Concomitant]
     Indication: GLAUCOMA
  3. LATANOPROST [Concomitant]
     Indication: GLAUCOMA
  4. LEVOBUNOLOL HYDROCHLORIDE [Concomitant]
     Indication: GLAUCOMA
  5. METHOTREXATE [Concomitant]
     Indication: PSORIASIS

REACTIONS (1)
  - ACUTE GENERALISED EXANTHEMATOUS PUSTULOSIS [None]
